FAERS Safety Report 6083809-0 (Version None)
Quarter: 2009Q1

REPORT INFORMATION
  Report Type: 
  Country: None (occurrence: None)
  Receive Date: 20090219
  Receipt Date: 20090212
  Transmission Date: 20090719
  Serious: Yes (Hospitalization)
  Sender: FDA-Public Use
  Company Number: JP-ABBOTT-09P-087-0557292-00

PATIENT
  Sex: Female

DRUGS (3)
  1. SEVOFRANE [Suspect]
     Indication: BLADDER NEOPLASM SURGERY
     Dates: start: 20090205
  2. SEVOFRANE [Suspect]
     Indication: HAEMATOMA EVACUATION
  3. CEFAZOLIN SODIUM [Concomitant]
     Indication: DRUG USE FOR UNKNOWN INDICATION
     Route: 042
     Dates: start: 20090205, end: 20090207

REACTIONS (1)
  - LIVER DISORDER [None]
